FAERS Safety Report 14330768 (Version 20)
Quarter: 2022Q3

REPORT INFORMATION
  Report Type: Report from Study
  Country: PL (occurrence: None)
  Receive Date: 20171228
  Receipt Date: 20220707
  Transmission Date: 20221027
  Serious: Yes (Hospitalization)
  Sender: FDA-Public Use
  Company Number: PL-ROCHE-2046442

PATIENT
  Age: 45 Year
  Sex: Female
  Weight: 55.6 kg

DRUGS (28)
  1. ATEZOLIZUMAB [Suspect]
     Active Substance: ATEZOLIZUMAB
     Indication: Ovarian cancer
     Dosage: DAY 1 OF EACH 21-DAY CYCLE FOR A TOTAL OF 6 CYCLES?DATE OF MOST RECENT DOSE OF ATEZOLIZUMAB: 05/DEC/
     Route: 042
     Dates: start: 20171205
  2. PACLITAXEL [Suspect]
     Active Substance: PACLITAXEL
     Indication: Ovarian cancer
     Dosage: DAY 1 OF EACH 21-DAY CYCLE FOR A TOTAL OF 6 CYCLES (175 MG/M2)?DOSE OF LAST PACLITAXEL ADMINISTERED
     Route: 042
     Dates: start: 20171205
  3. CARBOPLATIN [Suspect]
     Active Substance: CARBOPLATIN
     Indication: Ovarian cancer
     Dosage: DAY 1 OF EACH 21-DAY CYCLE FOR A TOTAL OF 6 CYCLES, DOSE: (AUC) OF 6 MG/ML/MIN?DOSE OF LAST CARBOPLA
     Route: 042
     Dates: start: 20171205
  4. BEVACIZUMAB [Suspect]
     Active Substance: BEVACIZUMAB
     Indication: Ovarian cancer
     Dosage: LAST DOSE OD BEVACIZUMAB PRIOR TO SAE 28/DEC/2017 825MG
     Route: 042
     Dates: start: 20171228
  5. ENOXAPARIN SODIUM [Concomitant]
     Active Substance: ENOXAPARIN SODIUM
     Indication: Prophylaxis
     Dates: start: 201710
  6. PERINDOPRIL [Concomitant]
     Active Substance: PERINDOPRIL
     Indication: Prophylaxis
     Dates: start: 201710
  7. DEXAMETHASONE [Concomitant]
     Active Substance: DEXAMETHASONE
     Indication: Prophylaxis
     Route: 030
     Dates: start: 20171204, end: 20171205
  8. DEXAMETHASONE [Concomitant]
     Active Substance: DEXAMETHASONE
     Route: 042
     Dates: start: 20180117, end: 20180118
  9. DEXAMETHASONE [Concomitant]
     Active Substance: DEXAMETHASONE
     Route: 042
     Dates: start: 20180207, end: 20180209
  10. CLEMASTINE [Concomitant]
     Active Substance: CLEMASTINE
     Indication: Premedication
     Dosage: 1 OTHER
     Route: 030
     Dates: start: 20171205, end: 20171205
  11. CLEMASTINE [Concomitant]
     Active Substance: CLEMASTINE
     Dates: start: 20170118, end: 20170118
  12. PANTOPRAZOLE SODIUM [Concomitant]
     Active Substance: PANTOPRAZOLE SODIUM
     Indication: Premedication
     Dosage: 1 OTHER
     Route: 042
     Dates: start: 20171205, end: 20171205
  13. PANTOPRAZOLE SODIUM [Concomitant]
     Active Substance: PANTOPRAZOLE SODIUM
     Dates: start: 20180118, end: 20180118
  14. METOCLOPRAMIDUM [Concomitant]
     Indication: Prophylaxis
     Route: 042
     Dates: start: 20171205, end: 20171205
  15. METOCLOPRAMIDUM [Concomitant]
     Dates: start: 20171219, end: 20171226
  16. METOCLOPRAMIDUM [Concomitant]
     Dates: start: 20180118, end: 20180118
  17. ONDANSETRON [Concomitant]
     Active Substance: ONDANSETRON
     Indication: Prophylaxis
     Route: 042
     Dates: start: 20171205, end: 20171205
  18. ONDANSETRON [Concomitant]
     Active Substance: ONDANSETRON
     Dates: start: 20180118, end: 20180118
  19. LORMETAZEPAM [Concomitant]
     Active Substance: LORMETAZEPAM
     Indication: Prophylaxis
     Route: 048
     Dates: start: 20171204, end: 20171205
  20. SODIUM CHLORIDE [Concomitant]
     Active Substance: SODIUM CHLORIDE
     Indication: Prophylaxis
     Route: 042
     Dates: start: 20171205, end: 20171205
  21. METHYLPREDNISOLONE [Concomitant]
     Active Substance: METHYLPREDNISOLONE
     Indication: Prophylaxis
     Route: 048
     Dates: start: 20171219, end: 20171225
  22. METHYLPREDNISOLONE [Concomitant]
     Active Substance: METHYLPREDNISOLONE
     Dates: start: 20180120, end: 20180130
  23. VITAMIN B6 [Concomitant]
     Active Substance: PYRIDOXINE HYDROCHLORIDE
     Indication: Prophylaxis
     Route: 048
     Dates: start: 20171221, end: 20171226
  24. NEULASTA [Concomitant]
     Active Substance: PEGFILGRASTIM
     Indication: Prophylaxis
     Dates: start: 20180118, end: 20180118
  25. PANTOPRAZOLE [Concomitant]
     Active Substance: PANTOPRAZOLE
     Dates: start: 20180207, end: 20180207
  26. NOCTOFER [Concomitant]
     Dates: start: 20180207, end: 20180208
  27. HUMAN RED BLOOD CELL [Concomitant]
     Active Substance: HUMAN RED BLOOD CELL
     Dates: start: 20180208, end: 20180208
  28. PYRIDOXINE [Concomitant]
     Active Substance: PYRIDOXINE
     Indication: Prophylaxis
     Dates: start: 20171221, end: 20171226

REACTIONS (4)
  - Febrile neutropenia [Recovered/Resolved]
  - Leukopenia [Recovered/Resolved]
  - Thrombocytopenia [Recovered/Resolved]
  - Thrombocytopenia [Recovered/Resolved]

NARRATIVE: CASE EVENT DATE: 20171219
